FAERS Safety Report 24994100 (Version 2)
Quarter: 2025Q1

REPORT INFORMATION
  Report Type: Spontaneous
  Country: US (occurrence: US)
  Receive Date: 20250221
  Receipt Date: 20250306
  Transmission Date: 20250409
  Serious: Yes (Hospitalization, Other)
  Sender: AUROBINDO
  Company Number: US-MLMSERVICE-20250130-PI384275-00329-1

PATIENT
  Age: 2 Year
  Sex: Female

DRUGS (3)
  1. ACETAMINOPHEN [Suspect]
     Active Substance: ACETAMINOPHEN
     Indication: Upper respiratory tract infection
     Route: 065
  2. VANCOMYCIN [Suspect]
     Active Substance: VANCOMYCIN
     Indication: Upper respiratory tract infection
     Route: 065
  3. ACYCLOVIR [Concomitant]
     Active Substance: ACYCLOVIR
     Indication: Upper respiratory tract infection
     Route: 065

REACTIONS (3)
  - Seizure [Unknown]
  - Dermatitis bullous [Recovered/Resolved]
  - Diffuse cutaneous mastocytosis [Recovered/Resolved]
